FAERS Safety Report 15021024 (Version 1)
Quarter: 2018Q2

REPORT INFORMATION
  Report Type: Spontaneous
  Country: US (occurrence: US)
  Receive Date: 20180601
  Receipt Date: 20180601
  Transmission Date: 20180711
  Serious: Yes (Hospitalization, Other)
  Sender: FDA-Public Use
  Company Number: None

PATIENT
  Age: 66 Year
  Sex: Male
  Weight: 80.91 kg

DRUGS (2)
  1. SUCCINYLCHOLINE [Suspect]
     Active Substance: SUCCINYLCHOLINE
     Indication: GENERAL ANAESTHESIA
     Route: 040
     Dates: start: 20180530, end: 20180530
  2. SEVOFLURANE. [Suspect]
     Active Substance: SEVOFLURANE
     Indication: GENERAL ANAESTHESIA
     Dosage: ?          OTHER FREQUENCY:CONTINUOUS;?
     Route: 055
     Dates: start: 20180530, end: 20180530

REACTIONS (1)
  - Hyperthermia malignant [None]

NARRATIVE: CASE EVENT DATE: 20180530
